FAERS Safety Report 14476975 (Version 1)
Quarter: 2018Q1

REPORT INFORMATION
  Report Type: Report from Study
  Country: US (occurrence: US)
  Receive Date: 20180201
  Receipt Date: 20180201
  Transmission Date: 20180509
  Serious: No
  Sender: FDA-Public Use
  Company Number: US-EXELIXIS-CABO-17008762

PATIENT
  Sex: Male

DRUGS (12)
  1. COMETRIQ [Suspect]
     Active Substance: CABOZANTINIB S-MALATE
     Dosage: 60 MG, QD
     Route: 048
     Dates: start: 20151103
  2. LEVOTHYROXINE. [Concomitant]
     Active Substance: LEVOTHYROXINE
  3. MORPHINE [Concomitant]
     Active Substance: MORPHINE
  4. AMLODIPINE [Concomitant]
     Active Substance: AMLODIPINE BESYLATE
  5. HYDROCODONE [Concomitant]
     Active Substance: HYDROCODONE
  6. CALCIUM [Concomitant]
     Active Substance: CALCIUM
  7. BENICAR [Concomitant]
     Active Substance: OLMESARTAN MEDOXOMIL
  8. ZYRTEC [Concomitant]
     Active Substance: CETIRIZINE HYDROCHLORIDE
  9. COMETRIQ [Suspect]
     Active Substance: CABOZANTINIB S-MALATE
     Indication: RENAL CANCER
     Dosage: 60 MG, QD
     Route: 048
     Dates: start: 20141202, end: 20150708
  10. CARVEDILOL. [Concomitant]
     Active Substance: CARVEDILOL
  11. GABAPENTIN. [Concomitant]
     Active Substance: GABAPENTIN
  12. DELSYM [Concomitant]
     Active Substance: DEXTROMETHORPHAN

REACTIONS (3)
  - Blood potassium increased [Unknown]
  - Drug hypersensitivity [Unknown]
  - Renal function test abnormal [Unknown]
